FAERS Safety Report 19012869 (Version 2)
Quarter: 2021Q1

REPORT INFORMATION
  Report Type: Report from Study
  Country: CA (occurrence: CA)
  Receive Date: 20210315
  Receipt Date: 20210329
  Transmission Date: 20210420
  Serious: Yes (Death, Other)
  Sender: FDA-Public Use
  Company Number: CA-TAKEDA-CA202016468

PATIENT
  Age: 63 Year
  Sex: Female

DRUGS (31)
  1. ICATIBANT [Suspect]
     Active Substance: ICATIBANT ACETATE
     Dosage: 30MG/3 ML, AS REQ^D
     Route: 065
     Dates: start: 20160405
  2. ICATIBANT [Suspect]
     Active Substance: ICATIBANT ACETATE
     Dosage: 30MG/3 ML, AS REQ^D
     Route: 065
     Dates: start: 20160405
  3. HIZENTRA [Concomitant]
     Active Substance: HUMAN IMMUNOGLOBULIN G
     Dosage: UNK
     Route: 065
  4. ICATIBANT [Suspect]
     Active Substance: ICATIBANT ACETATE
     Dosage: 30MG/3 ML, AS REQ^D
     Route: 065
     Dates: start: 20160405
  5. PANTOLOC CONTROL [Concomitant]
     Active Substance: PANTOPRAZOLE SODIUM
     Dosage: UNK
     Route: 065
     Dates: start: 20140101
  6. ICATIBANT [Suspect]
     Active Substance: ICATIBANT ACETATE
     Indication: HEREDITARY ANGIOEDEMA
     Dosage: 30MG/3ML, AS REQ^D
     Route: 058
     Dates: start: 20160405
  7. ICATIBANT [Suspect]
     Active Substance: ICATIBANT ACETATE
     Dosage: 30MG/3 ML, AS REQ^D
     Route: 065
     Dates: start: 20160405
  8. SALAGEN [Concomitant]
     Active Substance: PILOCARPINE HYDROCHLORIDE
     Dosage: UNK
     Route: 065
     Dates: start: 20110101
  9. PLAQUENIL [Concomitant]
     Active Substance: HYDROXYCHLOROQUINE SULFATE
     Dosage: UNK
     Route: 065
     Dates: start: 20060101
  10. RADICAVA [Concomitant]
     Active Substance: EDARAVONE
     Indication: AMYOTROPHIC LATERAL SCLEROSIS
     Dosage: UNK
     Route: 065
  11. ICATIBANT [Suspect]
     Active Substance: ICATIBANT ACETATE
     Dosage: 30 MG/3 ML, PRN
     Route: 065
     Dates: start: 20160405
  12. BERINERT [Concomitant]
     Active Substance: HUMAN C1-ESTERASE INHIBITOR
     Dosage: 1000 INTERNATIONAL UNIT, 1X/WEEK
     Route: 065
     Dates: start: 20130101
  13. ICATIBANT [Suspect]
     Active Substance: ICATIBANT ACETATE
     Dosage: 30MG/3 ML, AS REQ^D
     Route: 065
     Dates: start: 20160405
  14. ICATIBANT [Suspect]
     Active Substance: ICATIBANT ACETATE
     Dosage: 30 MG/3 ML, PRN
     Route: 065
     Dates: start: 20201103
  15. RILUZOLE. [Concomitant]
     Active Substance: RILUZOLE
     Indication: AMYOTROPHIC LATERAL SCLEROSIS
     Dosage: UNK
     Route: 065
     Dates: start: 20180901
  16. TRANEXAMIC ACID. [Concomitant]
     Active Substance: TRANEXAMIC ACID
     Dosage: UNK
     Route: 065
     Dates: start: 20130801
  17. BERINERT [Concomitant]
     Active Substance: HUMAN C1-ESTERASE INHIBITOR
     Dosage: 1000 INTERNATIONAL UNIT, AS REQ^D
     Route: 065
     Dates: start: 20130101
  18. RIZATRIPTAN. [Concomitant]
     Active Substance: RIZATRIPTAN
     Dosage: UNK
     Route: 065
     Dates: start: 20000101
  19. AMITRIPTYLINE [Concomitant]
     Active Substance: AMITRIPTYLINE
     Dosage: UNK
     Route: 065
     Dates: start: 20180901
  20. ICATIBANT [Suspect]
     Active Substance: ICATIBANT ACETATE
     Indication: HEREDITARY ANGIOEDEMA
     Dosage: 30MG/3ML, AS REQ^D
     Route: 058
     Dates: start: 20160405
  21. ICATIBANT [Suspect]
     Active Substance: ICATIBANT ACETATE
     Dosage: 30MG/3 ML, AS REQ^D
     Route: 065
     Dates: start: 20160405
  22. ICATIBANT [Suspect]
     Active Substance: ICATIBANT ACETATE
     Dosage: 30 MG/3 ML, PRN
     Route: 065
     Dates: start: 20160405, end: 20210306
  23. ICATIBANT [Suspect]
     Active Substance: ICATIBANT ACETATE
     Dosage: 30 MG/3 ML, PRN
     Route: 065
     Dates: start: 20201104
  24. ICATIBANT [Suspect]
     Active Substance: ICATIBANT ACETATE
     Dosage: 30 MG/3 ML, PRN
     Route: 065
     Dates: start: 20201104
  25. CUVITRU [Suspect]
     Active Substance: HUMAN IMMUNOGLOBULIN G
     Indication: HEREDITARY ANGIOEDEMA
     Dosage: 8 GRAM, 1X/WEEK
     Route: 058
     Dates: start: 20180925, end: 20210306
  26. CUVITRU [Suspect]
     Active Substance: HUMAN IMMUNOGLOBULIN G
     Indication: SECONDARY IMMUNODEFICIENCY
     Dosage: UNK
     Route: 065
     Dates: start: 20200928
  27. IGG [Concomitant]
     Active Substance: HUMAN IMMUNOGLOBULIN G
     Dosage: UNK
     Route: 065
     Dates: start: 20130101
  28. ADVAIR HFA [Concomitant]
     Active Substance: FLUTICASONE PROPIONATE\SALMETEROL XINAFOATE
     Dosage: UNK
     Route: 065
     Dates: start: 20120101
  29. ICATIBANT [Suspect]
     Active Substance: ICATIBANT ACETATE
     Dosage: 30 MG/3 ML, PRN
     Route: 065
     Dates: start: 20160405
  30. ICATIBANT [Suspect]
     Active Substance: ICATIBANT ACETATE
     Dosage: 30 MG/3 ML, PRN
     Route: 065
     Dates: start: 20160405, end: 20210306
  31. ICATIBANT [Suspect]
     Active Substance: ICATIBANT ACETATE
     Dosage: 30 MG/3 ML, PRN
     Route: 065
     Dates: start: 20201103

REACTIONS (2)
  - Death [Fatal]
  - Hereditary angioedema [Unknown]

NARRATIVE: CASE EVENT DATE: 20200412
